FAERS Safety Report 16530965 (Version 1)
Quarter: 2019Q3

REPORT INFORMATION
  Report Type: Report from Study
  Country: CA (occurrence: CA)
  Receive Date: 20190704
  Receipt Date: 20190704
  Transmission Date: 20191004
  Serious: Yes (Hospitalization, Other)
  Sender: FDA-Public Use
  Company Number: PHHY2015CA034655

PATIENT
  Age: 81 Year
  Sex: Female

DRUGS (2)
  1. SANDOSTATIN LAR DEPOT [Suspect]
     Active Substance: OCTREOTIDE ACETATE
     Dosage: 30 MG, QMO (EVERY 4 WEEKS)
     Route: 030
     Dates: start: 2013
  2. SANDOSTATIN LAR DEPOT [Suspect]
     Active Substance: OCTREOTIDE ACETATE
     Indication: ACROMEGALY
     Dosage: 30 MG, QMO (EVERY 4 WEEKS)
     Route: 030
     Dates: start: 2002

REACTIONS (11)
  - Pneumonia [Recovering/Resolving]
  - Pneumonia aspiration [Recovered/Resolved]
  - Blood pressure diastolic decreased [Unknown]
  - Dysphagia [Unknown]
  - Pneumonia aspiration [Recovered/Resolved]
  - Blood pressure systolic increased [Unknown]
  - Dyspnoea [Recovered/Resolved]
  - Anxiety [Recovered/Resolved]
  - Fear [Unknown]
  - Productive cough [Unknown]
  - Syringe issue [Unknown]

NARRATIVE: CASE EVENT DATE: 20150310
